FAERS Safety Report 19810648 (Version 1)
Quarter: 2021Q3

REPORT INFORMATION
  Report Type: Spontaneous
  Country: AR (occurrence: AR)
  Receive Date: 20210909
  Receipt Date: 20210909
  Transmission Date: 20211014
  Serious: Yes (Other)
  Sender: FDA-Public Use
  Company Number: AR-PFIZER INC-2021664806

PATIENT
  Age: 90 Year
  Sex: Male

DRUGS (1)
  1. SUTENT [Suspect]
     Active Substance: SUNITINIB MALATE
     Indication: METASTATIC RENAL CELL CARCINOMA
     Dosage: 50 MG, CYCLIC (45 DAYS, SCHEME 4/2 REST)
     Dates: start: 20210520, end: 202106

REACTIONS (5)
  - General physical health deterioration [Unknown]
  - Malaise [Not Recovered/Not Resolved]
  - Urinary tract infection [Unknown]
  - Anger [Unknown]
  - Pain [Unknown]

NARRATIVE: CASE EVENT DATE: 202106
